FAERS Safety Report 13188421 (Version 1)
Quarter: 2017Q1

REPORT INFORMATION
  Report Type: Spontaneous
  Country: US (occurrence: US)
  Receive Date: 20170203
  Receipt Date: 20170203
  Transmission Date: 20170428
  Serious: No
  Sender: FDA-Public Use
  Company Number: None

PATIENT
  Age: 65 Year
  Sex: Female
  Weight: 76.5 kg

DRUGS (15)
  1. DEGLYCYRRHIZINATED LICORICE [Concomitant]
  2. QUERCETIN BROMELAIN [Concomitant]
  3. MSM [Concomitant]
     Active Substance: DIMETHYL SULFONE
  4. TURMERIC CURCUMIN FUSION [Concomitant]
  5. MAGNESIUM [Concomitant]
     Active Substance: MAGNESIUM
  6. GINGER ROOT [Concomitant]
     Active Substance: GINGER
  7. OLIVE LEAF EXTRACT [Concomitant]
  8. RANITIDINE. [Suspect]
     Active Substance: RANITIDINE
     Indication: GASTROOESOPHAGEAL REFLUX DISEASE
     Dosage: ?          QUANTITY:1 TABLET(S);?
     Route: 048
     Dates: start: 20170124, end: 20170131
  9. CHONDROITIN [Concomitant]
     Active Substance: CHONDROITIN
  10. VITAMIN D3 [Concomitant]
     Active Substance: CHOLECALCIFEROL
  11. FLORA-JEN 3 PRO-BIOTIC [Concomitant]
  12. COQ10 UBIQUINOL [Concomitant]
  13. NOW SLIPPERY ELM POWDER [Concomitant]
  14. JARROW GLUCOSAMINE [Concomitant]
  15. TART CHERRY [Concomitant]

REACTIONS (1)
  - Chest pain [None]

NARRATIVE: CASE EVENT DATE: 20170131
